FAERS Safety Report 25802958 (Version 1)
Quarter: 2025Q3

REPORT INFORMATION
  Report Type: Spontaneous
  Country: EU (occurrence: EU)
  Receive Date: 20250915
  Receipt Date: 20250915
  Transmission Date: 20251021
  Serious: Yes (Hospitalization)
  Sender: CSL BEHRING
  Company Number: None

PATIENT
  Age: 76 Year
  Sex: Female
  Weight: 110 kg

DRUGS (1)
  1. VELPHORO [Suspect]
     Active Substance: SUCROFERRIC OXYHYDROXIDE
     Indication: Hyperparathyroidism secondary
     Dosage: 1 TABLET MORNING, NOON, AND EVENING
     Route: 065
     Dates: start: 20220720, end: 20250725

REACTIONS (2)
  - Hyperferritinaemia [Recovering/Resolving]
  - Product use in unapproved indication [Unknown]

NARRATIVE: CASE EVENT DATE: 20220720
